FAERS Safety Report 18362610 (Version 1)
Quarter: 2020Q4

REPORT INFORMATION
  Report Type: Other
  Country: US (occurrence: US)
  Receive Date: 20201009
  Receipt Date: 20201009
  Transmission Date: 20210114
  Serious: Yes (Other)
  Sender: FDA-Public Use
  Company Number: US-ROCHE-2680094

PATIENT
  Sex: Female

DRUGS (1)
  1. ACTEMRA [Suspect]
     Active Substance: TOCILIZUMAB
     Indication: RHEUMATOID ARTHRITIS
     Dosage: THERAPY REMAINS ONGOING
     Route: 042

REACTIONS (5)
  - Off label use [Unknown]
  - Diplopia [Unknown]
  - Macular degeneration [Not Recovered/Not Resolved]
  - Intentional product use issue [Unknown]
  - Blindness [Unknown]
